FAERS Safety Report 25033907 (Version 1)
Quarter: 2025Q1

REPORT INFORMATION
  Report Type: Spontaneous
  Country: US (occurrence: US)
  Receive Date: 20250303
  Receipt Date: 20250303
  Transmission Date: 20250409
  Serious: No
  Sender: SANOFI AVENTIS
  Company Number: US-SA-2025SA061351

PATIENT
  Age: 42 Year
  Sex: Female

DRUGS (1)
  1. DUPIXENT [Suspect]
     Active Substance: DUPILUMAB
     Indication: Dermatitis contact
     Dosage: 300 MG, QOW
     Dates: start: 202501

REACTIONS (5)
  - Injection site pain [Unknown]
  - Injection site swelling [Unknown]
  - Injection site erythema [Unknown]
  - Injection site warmth [Unknown]
  - Product use in unapproved indication [Unknown]

NARRATIVE: CASE EVENT DATE: 20250101
